FAERS Safety Report 7474246-2 (Version None)
Quarter: 2011Q2

REPORT INFORMATION
  Report Type: 
  Country: None (occurrence: None)
  Receive Date: 20110511
  Receipt Date: 20091111
  Transmission Date: 20111010
  Serious: Yes (Other)
  Sender: FDA-Public Use
  Company Number: DE-GENENTECH-318393

PATIENT
  Age: 80 Year

DRUGS (1)
  1. LUCENTIS [Suspect]
     Indication: MACULAR DEGENERATION
     Route: 031

REACTIONS (4)
  - MALAISE [None]
  - CATARACT [None]
  - SEDATION [None]
  - VISUAL ACUITY REDUCED [None]
